FAERS Safety Report 4429251-7 (Version None)
Quarter: 2004Q3

REPORT INFORMATION
  Report Type: 
  Country: None (occurrence: None)
  Receive Date: 20040819
  Receipt Date: 20040809
  Transmission Date: 20050211
  Serious: Yes (Hospitalization)
  Sender: FDA-Public Use
  Company Number: PHBS2004CO10578

PATIENT
  Age: 58 Year
  Sex: Female

DRUGS (4)
  1. GLEEVEC [Suspect]
     Indication: CHRONIC MYELOID LEUKAEMIA
     Dosage: 100 MG/D
     Route: 048
  2. GLEEVEC [Suspect]
     Dosage: 400 MG/D
     Route: 048
  3. GLEEVEC [Suspect]
     Dosage: 800 MG/D
     Route: 048
  4. OPIOIDS [Concomitant]

REACTIONS (9)
  - ANAEMIA [None]
  - BLADDER PAIN [None]
  - BLAST CRISIS IN MYELOGENOUS LEUKAEMIA [None]
  - BLOOD ALKALINE PHOSPHATASE INCREASED [None]
  - DISEASE PROGRESSION [None]
  - HEPATIC ENZYME INCREASED [None]
  - PAIN [None]
  - THROMBOCYTOPENIA [None]
  - VOMITING [None]
